FAERS Safety Report 23755288 (Version 10)
Quarter: 2024Q4

REPORT INFORMATION
  Report Type: Spontaneous
  Country: US (occurrence: US)
  Receive Date: 20240418
  Receipt Date: 20241231
  Transmission Date: 20250114
  Serious: Yes (Other)
  Sender: IPSEN BIOPHARMACEUTICALS, INC.
  Company Number: US-IPSEN Group, Research and Development-2024-06345

PATIENT
  Age: 5 Year
  Sex: Female
  Weight: 15.42 kg

DRUGS (8)
  1. TAZVERIK [Suspect]
     Active Substance: TAZEMETOSTAT HYDROBROMIDE
     Indication: Soft tissue sarcoma
     Route: 048
     Dates: start: 20240119, end: 20240818
  2. TAZVERIK [Suspect]
     Active Substance: TAZEMETOSTAT HYDROBROMIDE
     Route: 048
     Dates: start: 20240821
  3. TAZVERIK [Suspect]
     Active Substance: TAZEMETOSTAT HYDROBROMIDE
     Route: 048
     Dates: end: 20241217
  4. VITAMIN D3 [Concomitant]
     Active Substance: CHOLECALCIFEROL
  5. K PHOS NEUTRAL [Concomitant]
     Active Substance: POTASSIUM PHOSPHATE, MONOBASIC\SODIUM PHOSPHATE, DIBASIC, ANHYDROUS\SODIUM PHOSPHATE, MONOBASIC, MON
  6. LIDOCAINE\PRILOCAINE [Concomitant]
     Active Substance: LIDOCAINE\PRILOCAINE
     Dosage: CREAM
  7. MIRALAX [Concomitant]
     Active Substance: POLYETHYLENE GLYCOL 3350
  8. ZOFRAN [Concomitant]
     Active Substance: ONDANSETRON HYDROCHLORIDE

REACTIONS (16)
  - Kidney infection [Not Recovered/Not Resolved]
  - Pertussis [Not Recovered/Not Resolved]
  - Pyrexia [Recovered/Resolved]
  - Proteinuria [Recovered/Resolved]
  - Creatinine urine increased [Recovered/Resolved]
  - Decreased appetite [Not Recovered/Not Resolved]
  - Renal disorder [Unknown]
  - Vomiting [Recovering/Resolving]
  - Fatigue [Recovering/Resolving]
  - Pain in extremity [Not Recovered/Not Resolved]
  - Abdominal pain upper [Not Recovered/Not Resolved]
  - Weight decreased [Not Recovered/Not Resolved]
  - Proteinuria [Not Recovered/Not Resolved]
  - Eye movement disorder [Not Recovered/Not Resolved]
  - Pyrexia [Recovered/Resolved]
  - Product use issue [Unknown]

NARRATIVE: CASE EVENT DATE: 20240119
